FAERS Safety Report 5400189-1 (Version None)
Quarter: 2007Q3

REPORT INFORMATION
  Report Type: 
  Country: None (occurrence: None)
  Receive Date: 20070727
  Receipt Date: 20070727
  Transmission Date: 20080115
  Serious: Yes (Hospitalization)
  Sender: FDA-Public Use
  Company Number: None

PATIENT
  Sex: Male
  Weight: 84 kg

DRUGS (2)
  1. TARCEVA [Suspect]
     Indication: GLIOBLASTOMA MULTIFORME
     Dosage: 400 MG DAILY ORAL
     Route: 048
     Dates: start: 20070702
  2. RAPAMUNE [Suspect]
     Indication: GLIOBLASTOMA MULTIFORME
     Dosage: 10MG DAILY ORAL
     Route: 048
     Dates: start: 20070702

REACTIONS (2)
  - MUSCULAR WEAKNESS [None]
  - PYREXIA [None]
